FAERS Safety Report 25032141 (Version 1)
Quarter: 2025Q1

REPORT INFORMATION
  Report Type: Spontaneous
  Country: US (occurrence: US)
  Receive Date: 20250303
  Receipt Date: 20250303
  Transmission Date: 20250409
  Serious: Yes (Hospitalization)
  Sender: PFIZER
  Company Number: US-PFIZER INC-202500046883

PATIENT
  Age: 81 Year
  Sex: Female

DRUGS (8)
  1. IBRANCE [Suspect]
     Active Substance: PALBOCICLIB
     Indication: Breast cancer
     Route: 048
  2. CIPROFLOXACIN [Concomitant]
     Active Substance: CIPROFLOXACIN
  3. VITAMIN D NOS [Concomitant]
     Active Substance: CHOLECALCIFEROL\ERGOCALCIFEROL
  4. LOSARTAN [Concomitant]
     Active Substance: LOSARTAN
  5. AMLODIPINE [Concomitant]
     Active Substance: AMLODIPINE BESYLATE
  6. LETROZOLE [Concomitant]
     Active Substance: LETROZOLE
  7. ATENOLOL [Concomitant]
     Active Substance: ATENOLOL
  8. INDAPAMIDE [Concomitant]
     Active Substance: INDAPAMIDE

REACTIONS (2)
  - Vertigo [Recovered/Resolved]
  - Vomiting [Unknown]

NARRATIVE: CASE EVENT DATE: 20241201
